FAERS Safety Report 5198961-9 (Version None)
Quarter: 2006Q4

REPORT INFORMATION
  Report Type: 
  Country: None (occurrence: None)
  Receive Date: 20060921
  Receipt Date: 20060424
  Transmission Date: 20070319
  Serious: Yes (Hospitalization)
  Sender: FDA-Public Use
  Company Number: PHEH2006US03866

PATIENT
  Age: 77 Year
  Sex: Female
  Weight: 62.6 kg

DRUGS (1)
  1. ZELNORM [Suspect]
     Indication: IRRITABLE BOWEL SYNDROME
     Dosage: 6 MG, QD, ORAL
     Route: 048
     Dates: start: 20060318, end: 20060327

REACTIONS (2)
  - BACK PAIN [None]
  - DRUG INEFFECTIVE [None]
